FAERS Safety Report 8420236-2 (Version None)
Quarter: 2012Q2

REPORT INFORMATION
  Report Type: 
  Country: None (occurrence: None)
  Receive Date: 20120607
  Receipt Date: 20120604
  Transmission Date: 20120825
  Serious: Yes (Disabling, Other)
  Sender: FDA-Public Use
  Company Number: US-PFIZER INC-2012134298

PATIENT
  Sex: Male
  Weight: 149.66 kg

DRUGS (5)
  1. INSULIN [Concomitant]
     Dosage: UNK
  2. IBUPROFEN [Concomitant]
     Dosage: UNK
  3. NEURONTIN [Suspect]
     Indication: DIABETIC NEUROPATHY
     Dosage: 800 MG, 3X/DAY
     Route: 048
  4. ACTOS [Concomitant]
     Dosage: UNK
  5. NEXIUM [Concomitant]
     Dosage: UNK

REACTIONS (3)
  - DIABETES MELLITUS [None]
  - NEOPLASM MALIGNANT [None]
  - MUSCULOSKELETAL DISORDER [None]
